FAERS Safety Report 4928130-6 (Version None)
Quarter: 2006Q1

REPORT INFORMATION
  Report Type: 
  Country: None (occurrence: None)
  Receive Date: 20060223
  Receipt Date: 20060206
  Transmission Date: 20060701
  Serious: Yes (Other)
  Sender: FDA-Public Use
  Company Number: 2006-00095FE

PATIENT
  Sex: Male

DRUGS (1)
  1. SOMATROPIN [Suspect]

REACTIONS (1)
  - DIABETES MELLITUS [None]
